FAERS Safety Report 5676079-6 (Version None)
Quarter: 2008Q1

REPORT INFORMATION
  Report Type: 
  Country: None (occurrence: None)
  Receive Date: 20080321
  Receipt Date: 20080314
  Transmission Date: 20080703
  Serious: No
  Sender: FDA-Public Use
  Company Number: US-BAXTER-2008BH000378

PATIENT
  Age: 17 Year
  Sex: Male
  Weight: 56 kg

DRUGS (17)
  1. HEPARIN SODIUM [Suspect]
     Indication: PROPHYLAXIS
     Route: 040
     Dates: start: 20070801, end: 20080107
  2. HEPARIN SODIUM [Suspect]
     Indication: ANTICOAGULATION DRUG LEVEL THERAPEUTIC
     Route: 040
     Dates: start: 20070801, end: 20080107
  3. HEPARIN SODIUM [Suspect]
     Route: 041
     Dates: start: 20070801, end: 20080107
  4. HEPARIN SODIUM [Suspect]
     Route: 041
     Dates: start: 20070801, end: 20080107
  5. CALCIJEX [Concomitant]
     Indication: HYPOCALCAEMIA
     Route: 042
     Dates: start: 20070801
  6. EPOGEN [Concomitant]
     Indication: ANAEMIA
     Route: 042
     Dates: start: 20070801
  7. PHOSLO [Concomitant]
     Indication: HYPOPHOSPHATAEMIA
     Dosage: DOSE UNIT:
     Route: 048
     Dates: start: 20070801
  8. RENAGEL [Concomitant]
     Indication: HYPOPHOSPHATAEMIA
     Route: 048
     Dates: start: 20070815
  9. NEPHROCAPS [Concomitant]
     Indication: MEDICAL DIET
     Dosage: DOSE UNIT:UNKNOWN
     Route: 048
     Dates: start: 20070801
  10. RISPERDAL [Concomitant]
     Indication: MENTAL DISORDER
     Route: 048
     Dates: start: 20070801
  11. CELEXA [Concomitant]
     Indication: MENTAL DISORDER
     Route: 048
     Dates: start: 20070801
  12. SYNTHROID [Concomitant]
     Indication: HYPOTHYROIDISM
     Route: 048
     Dates: start: 20070801
  13. SODIUM BICARBONATE [Concomitant]
     Indication: ACIDOSIS
     Route: 048
     Dates: start: 20070801
  14. VALINE 1% [Concomitant]
     Indication: MEDICAL DIET
     Route: 048
     Dates: start: 20070801
  15. VITAMIN B-12 [Concomitant]
     Indication: MEDICAL DIET
     Route: 058
     Dates: start: 20070801
  16. CARNITOR [Concomitant]
     Indication: MEDICAL DIET
     Route: 048
     Dates: start: 20070801
  17. FERRLECIT [Concomitant]
     Indication: ANAEMIA
     Route: 042
     Dates: start: 20070919

REACTIONS (4)
  - ANAPHYLACTIC REACTION [None]
  - DIZZINESS [None]
  - HYPOTENSION [None]
  - TACHYCARDIA [None]
